FAERS Safety Report 14126768 (Version 3)
Quarter: 2017Q4

REPORT INFORMATION
  Report Type: Report from Study
  Country: US (occurrence: US)
  Receive Date: 20171025
  Receipt Date: 20171108
  Transmission Date: 20180321
  Serious: Yes (Hospitalization)
  Sender: FDA-Public Use
  Company Number: US-MITSUBISHI TANABE PHARMA CORPORATION-MPE2017-0021983

PATIENT
  Age: 65 Year
  Sex: Female
  Weight: 59.02 kg

DRUGS (6)
  1. LEVOTHYROXINE. [Concomitant]
     Active Substance: LEVOTHYROXINE
     Indication: HYPOTHYROIDISM
     Route: 065
  2. NUEDEXTA [Concomitant]
     Active Substance: DEXTROMETHORPHAN HYDROBROMIDE\QUINIDINE SULFATE
     Indication: AMYOTROPHIC LATERAL SCLEROSIS
     Route: 065
  3. RADICAVA [Suspect]
     Active Substance: EDARAVONE
     Indication: AMYOTROPHIC LATERAL SCLEROSIS
     Route: 042
     Dates: start: 20171002, end: 20171006
  4. RILUZOLE. [Concomitant]
     Active Substance: RILUZOLE
     Indication: AMYOTROPHIC LATERAL SCLEROSIS
     Route: 065
  5. RADICAVA [Suspect]
     Active Substance: EDARAVONE
     Route: 042
     Dates: start: 20170925, end: 20170929
  6. RADICAVA [Suspect]
     Active Substance: EDARAVONE
     Route: 042
     Dates: start: 20170829, end: 20170911

REACTIONS (4)
  - Decreased appetite [Unknown]
  - Lethargy [Unknown]
  - Urinary tract infection [Unknown]
  - Dyspnoea [Not Recovered/Not Resolved]

NARRATIVE: CASE EVENT DATE: 201709
